FAERS Safety Report 10219805 (Version 1)
Quarter: 2014Q2

REPORT INFORMATION
  Report Type: Spontaneous
  Country: HN (occurrence: HN)
  Receive Date: 20140605
  Receipt Date: 20140605
  Transmission Date: 20141212
  Serious: Yes (Other)
  Sender: FDA-Public Use
  Company Number: PHHY2014HN063317

PATIENT
  Sex: Male
  Weight: 74.83 kg

DRUGS (9)
  1. ONBREZ [Suspect]
     Indication: CHRONIC OBSTRUCTIVE PULMONARY DISEASE
     Dosage: 150 UG, Q24 H
     Dates: start: 201402, end: 201403
  2. ONBREZ [Suspect]
     Dosage: 300 UG, Q24 H
     Dates: start: 201403, end: 201404
  3. PRIMERIS//CEFOTAXIME SODIUM [Concomitant]
     Dosage: 500 MG, Q24H FOR 7 DAYS
     Dates: start: 201402
  4. MUCOCAR [Concomitant]
     Dosage: 200 MG, Q24H
     Dates: start: 201402
  5. LIPITOR [Concomitant]
     Dosage: 40 MG, Q24H
  6. BLOPRESS [Concomitant]
     Dosage: 16 MG, Q24H
  7. ALDACTONE [Concomitant]
     Dosage: 25 MG, Q24HR
  8. ATROVENT [Concomitant]
     Dosage: 20 UG, TWO INHALATIONS THREE TIMES/DAY
     Route: 055
  9. OMEPRAZOLE [Concomitant]
     Dosage: 20 MG, Q24H

REACTIONS (6)
  - Cardiac failure chronic [Unknown]
  - Orthopnoea [Unknown]
  - Dyspnoea exertional [Unknown]
  - Oedema peripheral [Unknown]
  - Generalised oedema [Recovering/Resolving]
  - Weight increased [Recovering/Resolving]
